FAERS Safety Report 5259965-0 (Version None)
Quarter: 2007Q1

REPORT INFORMATION
  Report Type: 
  Country: None (occurrence: None)
  Receive Date: 20070307
  Receipt Date: 20070227
  Transmission Date: 20070707
  Serious: Yes (Hospitalization, Disabling)
  Sender: FDA-Public Use
  Company Number: 235772

PATIENT
  Age: 45 Year
  Sex: Female

DRUGS (17)
  1. XOLAIR [Suspect]
     Indication: ASTHMA
     Dosage: 225 MG, Q3W, SUBCUTANEOUS
     Route: 058
     Dates: start: 20061009
  2. LISINOPRIL [Concomitant]
  3. NEXIUM [Concomitant]
  4. ZYRTEC [Concomitant]
  5. ADVAIR DISKUS 100/50 [Concomitant]
  6. SINGULAIR [Concomitant]
  7. ALBUTEROL (ALBUTEROL/ALBUTEROL SULFATE) [Concomitant]
  8. SPIRIVA [Concomitant]
  9. NUVARING [Concomitant]
  10. XOPENEX [Concomitant]
  11. ASTELIN [Concomitant]
  12. FLONASE [Concomitant]
  13. ALLEGRA [Concomitant]
  14. PRINZIDE [Concomitant]
  15. ASPIRIN [Concomitant]
  16. NORVASC [Concomitant]
  17. HYDROCHLOROTHIAZIDE [Concomitant]

REACTIONS (10)
  - ANTIPHOSPHOLIPID ANTIBODIES POSITIVE [None]
  - BETA-2 GLYCOPROTEIN ANTIBODY POSITIVE [None]
  - COMPLEMENT FACTOR ABNORMAL [None]
  - HAEMATOCRIT DECREASED [None]
  - HAEMOGLOBIN DECREASED [None]
  - OEDEMA PERIPHERAL [None]
  - PARAESTHESIA [None]
  - PLATELET COUNT INCREASED [None]
  - RAYNAUD'S PHENOMENON [None]
  - WHITE BLOOD CELL COUNT INCREASED [None]
